FAERS Safety Report 5983941-3 (Version None)
Quarter: 2008Q4

REPORT INFORMATION
  Report Type: 
  Country: None (occurrence: None)
  Receive Date: 20081208
  Receipt Date: 20081127
  Transmission Date: 20090506
  Serious: Yes (Hospitalization)
  Sender: FDA-Public Use
  Company Number: FR-JNJFOC-20081201753

PATIENT
  Sex: Female

DRUGS (3)
  1. IXPRIM [Suspect]
     Indication: SINUS HEADACHE
     Route: 048
  2. IZILOX [Suspect]
     Indication: SINUS HEADACHE
     Route: 048
  3. NSAID [Concomitant]
     Indication: RECTAL HAEMORRHAGE
     Route: 065

REACTIONS (3)
  - HEAD INJURY [None]
  - LOSS OF CONSCIOUSNESS [None]
  - MALAISE [None]
